FAERS Safety Report 13953436 (Version 1)
Quarter: 2017Q3

REPORT INFORMATION
  Report Type: Spontaneous
  Country: US (occurrence: US)
  Receive Date: 20170911
  Receipt Date: 20170911
  Transmission Date: 20171128
  Serious: No
  Sender: FDA-Public Use
  Company Number: US-TEVA-788722ACC

PATIENT
  Age: 9 Year
  Sex: Male

DRUGS (1)
  1. ATOMOXETINE. [Suspect]
     Active Substance: ATOMOXETINE HYDROCHLORIDE
     Dosage: 50 MILLIGRAM DAILY;
     Dates: start: 201706

REACTIONS (7)
  - Depression [Unknown]
  - Frustration tolerance decreased [Unknown]
  - Product substitution issue [Unknown]
  - Agitation [Unknown]
  - Emotional disorder [Unknown]
  - Crying [Unknown]
  - Abdominal pain upper [Unknown]

NARRATIVE: CASE EVENT DATE: 201706
